FAERS Safety Report 21548282 (Version 1)
Quarter: 2022Q4

REPORT INFORMATION
  Report Type: Spontaneous
  Country: US (occurrence: US)
  Receive Date: 20221103
  Receipt Date: 20221103
  Transmission Date: 20230113
  Serious: Yes (Hospitalization)
  Sender: FDA-Public Use
  Company Number: US-JNJFOC-20221055280

PATIENT
  Age: 16 Year
  Sex: Female

DRUGS (1)
  1. REMICADE [Suspect]
     Active Substance: INFLIXIMAB
     Indication: Colitis ulcerative
     Route: 041

REACTIONS (5)
  - Hypoxia [Unknown]
  - Tachypnoea [Unknown]
  - Tachycardia [Unknown]
  - Anaphylactic reaction [Unknown]
  - Infusion related reaction [Unknown]
